FAERS Safety Report 4731630-5 (Version None)
Quarter: 2005Q3

REPORT INFORMATION
  Report Type: 
  Country: None (occurrence: None)
  Receive Date: 20050719
  Receipt Date: 20050207
  Transmission Date: 20060218
  Serious: Yes (Hospitalization)
  Sender: FDA-Public Use
  Company Number: 2005BI003048

PATIENT
  Age: 71 Year
  Sex: Female

DRUGS (10)
  1. AVONEX [Suspect]
     Indication: MULTIPLE SCLEROSIS
     Dosage: 30 UG;QW;IM
     Route: 030
     Dates: start: 20020101, end: 20030101
  2. AVONEX [Suspect]
     Indication: MULTIPLE SCLEROSIS
     Dosage: 30 UG;QW;IM
     Route: 030
     Dates: start: 20030101
  3. SYNTHROID [Concomitant]
  4. PROTONIX [Concomitant]
  5. TRIAMCINOLONE [Concomitant]
  6. ATARAX [Concomitant]
  7. GLYCERINE SUPPOSITORY [Concomitant]
  8. CELEXA [Concomitant]
  9. PREDNISONE [Concomitant]
  10. ARTIFICIAL TEARS [Concomitant]

REACTIONS (12)
  - ABASIA [None]
  - ASTHENIA [None]
  - BACK PAIN [None]
  - CHILLS [None]
  - DECREASED APPETITE [None]
  - DRUG HYPERSENSITIVITY [None]
  - GROIN PAIN [None]
  - INFECTION [None]
  - INFLUENZA LIKE ILLNESS [None]
  - OEDEMA PERIPHERAL [None]
  - PYREXIA [None]
  - URINE OUTPUT DECREASED [None]
